FAERS Safety Report 7237415-2 (Version None)
Quarter: 2011Q1

REPORT INFORMATION
  Report Type: 
  Country: None (occurrence: None)
  Receive Date: 20110121
  Receipt Date: 20110113
  Transmission Date: 20110831
  Serious: Yes (Death, Hospitalization)
  Sender: FDA-Public Use
  Company Number: US-NOVOPROD-321597

PATIENT
  Sex: Female

DRUGS (1)
  1. NOVOSEVEN RT [Suspect]

REACTIONS (1)
  - POSTPARTUM HAEMORRHAGE [None]
